FAERS Safety Report 5329843-7 (Version None)
Quarter: 2007Q2

REPORT INFORMATION
  Report Type: 
  Country: None (occurrence: None)
  Receive Date: 20070517
  Receipt Date: 20070517
  Transmission Date: 20071010
  Serious: Yes (Life-Threatening)
  Sender: FDA-Public Use
  Company Number: None

PATIENT
  Sex: Female
  Weight: 104.3273 kg

DRUGS (1)
  1. DEMEROL [Suspect]
     Indication: CANCER PAIN
     Dates: start: 20070510

REACTIONS (1)
  - RESPIRATORY ARREST [None]
